FAERS Safety Report 6125229-6 (Version None)
Quarter: 2009Q1

REPORT INFORMATION
  Report Type: 
  Country: None (occurrence: None)
  Receive Date: 20090320
  Receipt Date: 20090310
  Transmission Date: 20090719
  Serious: Yes (Hospitalization)
  Sender: FDA-Public Use
  Company Number: DE-RANBAXY-2009RR-22694

PATIENT
  Age: 67 Year
  Sex: Female

DRUGS (14)
  1. FUROSEMIDE [Suspect]
     Indication: HYPERTENSION
     Dosage: 20 MG, BID
     Route: 048
  2. SIMVASTATIN [Suspect]
     Indication: CORONARY ARTERY DISEASE
     Dosage: 40 MG, QD
     Route: 048
     Dates: start: 20070101
  3. XIPAMIDE [Suspect]
     Indication: HYPERTENSION
     Dosage: 40 MG, QD
     Route: 048
  4. ASPIRIN [Suspect]
     Indication: CORONARY ARTERY DISEASE
     Dosage: 100 MG, QD
     Route: 048
     Dates: start: 20070101
  5. FALITHROM HEXAL [Suspect]
     Indication: ATRIAL FIBRILLATION
     Route: 048
  6. PREDNISOLONE [Suspect]
     Indication: RHEUMATOID ARTHRITIS
     Dosage: 5 MG, BID
     Route: 048
     Dates: start: 20081201
  7. BIOSPROLOL [Concomitant]
     Indication: CORONARY ARTERY DISEASE
     Dosage: 7.5 MG, QD
     Route: 048
     Dates: start: 20070101
  8. CARMEN [Concomitant]
     Indication: HYPERTENSION
     Dosage: 10 MG, QD
     Route: 048
  9. FLECAINIDE ACETATE [Concomitant]
     Indication: ATRIAL FIBRILLATION
     Dosage: 100 MG, BID
     Route: 048
  10. INSULIN ACTRAPID HUMAN [Concomitant]
     Indication: TYPE 2 DIABETES MELLITUS
     Dosage: 18-12-8-14 IU
     Route: 058
  11. METHOTREXATE SODIUM [Concomitant]
     Indication: RHEUMATOID ARTHRITIS
     Dosage: 15 MG, 1/WEEK
     Route: 048
  12. PENTALONG [Concomitant]
     Indication: CORONARY ARTERY DISEASE
     Dosage: 80 MG, TID
     Dates: start: 20070101
  13. RAMIPRIL [Concomitant]
     Indication: HYPERTENSION
     Dosage: 10 MG, QD
     Route: 048
  14. TRAMADOL HCL [Concomitant]
     Indication: RHEUMATOID ARTHRITIS
     Dosage: 100 MG, BID
     Route: 048

REACTIONS (3)
  - DRUG INTERACTION [None]
  - GASTROINTESTINAL HAEMORRHAGE [None]
  - HYPERGLYCAEMIA [None]
